FAERS Safety Report 19666861 (Version 1)
Quarter: 2021Q3

REPORT INFORMATION
  Report Type: Spontaneous
  Country: US (occurrence: US)
  Receive Date: 20210806
  Receipt Date: 20210806
  Transmission Date: 20211014
  Serious: No
  Sender: FDA-Public Use
  Company Number: None

PATIENT

DRUGS (2)
  1. MORPHINE SULFATE ORAL SOLUTION (CONCENTRATE) [Suspect]
     Active Substance: MORPHINE SULFATE
     Route: 048
  2. MORPHINE SULFATE EXTENDED RELEASE [Suspect]
     Active Substance: MORPHINE SULFATE

REACTIONS (2)
  - Intercepted product administration error [None]
  - Product dispensing error [None]
